FAERS Safety Report 14716275 (Version 2)
Quarter: 2018Q2

REPORT INFORMATION
  Report Type: Spontaneous
  Country: US (occurrence: US)
  Receive Date: 20180404
  Receipt Date: 20180525
  Transmission Date: 20180711
  Serious: Yes (Hospitalization, Other)
  Sender: FDA-Public Use
  Company Number: US-INTERCEPT-PMOCA2018000453

PATIENT

DRUGS (4)
  1. OCALIVA [Suspect]
     Active Substance: OBETICHOLIC ACID
     Indication: PRIMARY BILIARY CHOLANGITIS
     Dosage: 2.5 MG, 2X/WK
     Route: 048
     Dates: start: 20171230, end: 20180307
  2. URSODIOL. [Concomitant]
     Active Substance: URSODIOL
     Dosage: 300 MG, TID
     Dates: start: 20170321
  3. FUROSEMIDE. [Concomitant]
     Active Substance: FUROSEMIDE
     Dosage: UNK
     Dates: start: 20171222, end: 20180328
  4. SPIRONOLACTONE. [Concomitant]
     Active Substance: SPIRONOLACTONE
     Dosage: UNK
     Dates: start: 20171222, end: 20180329

REACTIONS (6)
  - Blood bilirubin increased [Recovered/Resolved]
  - Acute kidney injury [Unknown]
  - Syncope [Unknown]
  - Hepatic failure [Unknown]
  - Hepatic enzyme increased [Recovered/Resolved]
  - Model for end stage liver disease score increased [Unknown]

NARRATIVE: CASE EVENT DATE: 20180108
